FAERS Safety Report 17802036 (Version 2)
Quarter: 2020Q3

REPORT INFORMATION
  Report Type: Spontaneous
  Country: US (occurrence: US)
  Receive Date: 20200519
  Receipt Date: 20200909
  Transmission Date: 20201102
  Serious: No
  Sender: FDA-Public Use
  Company Number: US-DRREDDYS-USA/USA/20/0122945

PATIENT
  Age: 16 Year
  Sex: Male
  Weight: 100.2 kg

DRUGS (3)
  1. PROPOFOL INJECTABLE EMULSION [Suspect]
     Active Substance: PROPOFOL
     Dosage: TOTAL DOSE OF BOLUS PLUS INFUSION: 3215 MG
     Route: 042
     Dates: start: 20190425, end: 20190425
  2. PROPOFOL INJECTABLE EMULSION [Suspect]
     Active Substance: PROPOFOL
     Indication: ANAESTHESIA
     Dosage: BOLUS (TOTAL DOSE OF BOLUS PLUS INFUSION: 3215 MG)
     Route: 042
     Dates: start: 20190425, end: 20190425
  3. HEPARIN SODIUM. [Concomitant]
     Active Substance: HEPARIN SODIUM
     Indication: ANTICOAGULANT THERAPY
     Route: 042
     Dates: start: 201904

REACTIONS (1)
  - Priapism [Recovered/Resolved]

NARRATIVE: CASE EVENT DATE: 20190425
